FAERS Safety Report 11871436 (Version 1)
Quarter: 2015Q4

REPORT INFORMATION
  Report Type: Spontaneous
  Country: US (occurrence: US)
  Receive Date: 20151228
  Receipt Date: 20151228
  Transmission Date: 20160305
  Serious: Yes (Other)
  Sender: FDA-Public Use
  Company Number: US-JUBILANT CADISTA PHARMACEUTICALS-2015JUB00428

PATIENT
  Age: 72 Year
  Sex: Female

DRUGS (1)
  1. PREDNISONE. [Suspect]
     Active Substance: PREDNISONE
     Indication: ORGANISING PNEUMONIA
     Dosage: UNK
     Route: 048

REACTIONS (6)
  - Osteoporosis [Unknown]
  - Adrenal suppression [Unknown]
  - Hyponatraemia [Unknown]
  - Spinal fracture [Unknown]
  - Seizure [Recovered/Resolved]
  - Hypogammaglobulinaemia [Unknown]
